FAERS Safety Report 7757796-0 (Version None)
Quarter: 2011Q3

REPORT INFORMATION
  Report Type: 
  Country: None (occurrence: None)
  Receive Date: 20110918
  Receipt Date: 20110907
  Transmission Date: 20111222
  Serious: Yes (Life-Threatening, Hospitalization, Disabling, Other)
  Sender: FDA-Public Use
  Company Number: FR-CELGENEUS-056-21880-11091458

PATIENT

DRUGS (1)
  1. REVLIMID [Suspect]
     Indication: MULTIPLE MYELOMA
     Route: 048

REACTIONS (6)
  - NEUTROPENIA [None]
  - INFECTION [None]
  - THROMBOCYTOPENIA [None]
  - ACUTE LYMPHOCYTIC LEUKAEMIA [None]
  - LUNG DISORDER [None]
  - RASH [None]
